FAERS Safety Report 9879475 (Version 1)
Quarter: 2014Q1

REPORT INFORMATION
  Report Type: Spontaneous
  Country: JP (occurrence: JP)
  Receive Date: 20140206
  Receipt Date: 20140206
  Transmission Date: 20141002
  Serious: Yes (Death)
  Sender: FDA-Public Use
  Company Number: JP-CELGENEUS-087-50794-14020437

PATIENT
  Sex: Female

DRUGS (2)
  1. VIDAZA [Suspect]
     Indication: ACUTE MYELOID LEUKAEMIA
     Dosage: 100 MILLIGRAM
     Route: 058
     Dates: start: 201312
  2. VIDAZA [Suspect]
     Dosage: 100 MILLIGRAM
     Route: 058

REACTIONS (2)
  - Cardiac failure [Fatal]
  - Hepatic failure [Fatal]
